FAERS Safety Report 18801664 (Version 1)
Quarter: 2021Q1

REPORT INFORMATION
  Report Type: Spontaneous
  Country: US (occurrence: US)
  Receive Date: 20210128
  Receipt Date: 20210128
  Transmission Date: 20210419
  Serious: No
  Sender: FDA-Public Use
  Company Number: US-AMGEN-USASP2021010829

PATIENT
  Sex: Female

DRUGS (2)
  1. PROLIA [Suspect]
     Active Substance: DENOSUMAB
     Indication: OSTEOPOROSIS POSTMENOPAUSAL
     Dosage: UNK
     Route: 065
  2. ZITHROMAX [Concomitant]
     Active Substance: AZITHROMYCIN DIHYDRATE

REACTIONS (7)
  - Dyspepsia [Unknown]
  - Neuralgia [Unknown]
  - Osteoarthritis [Unknown]
  - Pain [Recovering/Resolving]
  - Peripheral swelling [Unknown]
  - Abdominal pain upper [Unknown]
  - Erythema [Unknown]

NARRATIVE: CASE EVENT DATE: 2020
